FAERS Safety Report 4459698-4 (Version None)
Quarter: 2004Q3

REPORT INFORMATION
  Report Type: 
  Country: None (occurrence: None)
  Receive Date: 20040928
  Receipt Date: 20040915
  Transmission Date: 20050211
  Serious: Yes (Hospitalization)
  Sender: FDA-Public Use
  Company Number: BE-JNJFOC-20040701962

PATIENT
  Age: 50 Year
  Sex: Male

DRUGS (6)
  1. REMICADE [Suspect]
     Route: 042
  2. REMICADE [Suspect]
     Route: 042
  3. REMICADE [Suspect]
     Indication: SPONDYLOARTHROPATHY
     Route: 042
  4. ATENOLOL [Concomitant]
  5. OMEPRAZOLE [Concomitant]
  6. CELEBREX [Concomitant]

REACTIONS (5)
  - DISSEMINATED TUBERCULOSIS [None]
  - GRANULOMA [None]
  - LIVER DISORDER [None]
  - NECROSIS [None]
  - PYREXIA [None]
